FAERS Safety Report 23050719 (Version 1)
Quarter: 2023Q4

REPORT INFORMATION
  Report Type: Spontaneous
  Country: US (occurrence: US)
  Receive Date: 20231010
  Receipt Date: 20231010
  Transmission Date: 20240109
  Serious: No
  Sender: FDA-Public Use
  Company Number: US-GILEAD-2023-0646731

PATIENT
  Age: 69 Year
  Sex: Male

DRUGS (1)
  1. LENACAPAVIR [Suspect]
     Active Substance: LENACAPAVIR
     Indication: HIV infection
     Dosage: INJECT 927MG (2 X 1.5ML) UNDER THE SKIN IN 2 SEPARATE SITES STARTING ON DAY 1, THEN EVERY 6 MONTHS
     Route: 058
     Dates: start: 202304

REACTIONS (2)
  - Erythema [Unknown]
  - Injection site nodule [Unknown]
